FAERS Safety Report 12356878 (Version 3)
Quarter: 2016Q3

REPORT INFORMATION
  Report Type: Spontaneous
  Country: US (occurrence: US)
  Receive Date: 20160511
  Receipt Date: 20160826
  Transmission Date: 20161109
  Serious: Yes (Hospitalization)
  Sender: FDA-Public Use
  Company Number: US-PFIZER INC-2016238818

PATIENT
  Age: 67 Year
  Sex: Male
  Weight: 131.9 kg

DRUGS (4)
  1. INLYTA [Suspect]
     Active Substance: AXITINIB
     Indication: HEPATIC CANCER
     Dosage: THREE 1MG TABLETS IN THE MORNING AND THREE 1 MG TABLETS IN THE AFTERNOON
     Route: 048
     Dates: start: 201602
  2. HUMULIN NOS [Concomitant]
     Active Substance: INSULIN HUMAN
     Indication: TYPE 2 DIABETES MELLITUS
     Dosage: 80 UNITS INJECTION AT NIGHT
  3. HUMALOG 70/30 [Concomitant]
     Active Substance: INSULIN HUMAN
     Indication: TYPE 2 DIABETES MELLITUS
     Dosage: 40 UNITS INJECTION EACH MORNING AND 60 UNITS INJECTION EACH AFTERNOON
  4. INLYTA [Suspect]
     Active Substance: AXITINIB
     Dosage: 3 MG, 2X/DAY (3 1MG TABS TWICE A DAY)
     Route: 048
     Dates: start: 20160213

REACTIONS (5)
  - Plantar erythema [Unknown]
  - Pain in extremity [Not Recovered/Not Resolved]
  - Product use issue [Not Recovered/Not Resolved]
  - Skin exfoliation [Not Recovered/Not Resolved]
  - Pain [Unknown]

NARRATIVE: CASE EVENT DATE: 201602
